FAERS Safety Report 7480293-7 (Version None)
Quarter: 2011Q2

REPORT INFORMATION
  Report Type: 
  Country: None (occurrence: None)
  Receive Date: 20110512
  Receipt Date: 20110512
  Transmission Date: 20111010
  Serious: Yes (Other)
  Sender: FDA-Public Use
  Company Number: None

PATIENT
  Age: 78 Year
  Sex: Female
  Weight: 68.0396 kg

DRUGS (1)
  1. PRADAXA [Suspect]

REACTIONS (2)
  - PRODUCT LABEL ISSUE [None]
  - MEDICATION ERROR [None]
